FAERS Safety Report 22527442 (Version 1)
Quarter: 2023Q2

REPORT INFORMATION
  Report Type: Spontaneous
  Country: US (occurrence: US)
  Receive Date: 20230606
  Receipt Date: 20230606
  Transmission Date: 20230721
  Serious: No
  Sender: FDA-Public Use
  Company Number: US-BRAINTREE LABORATORIES, INC.-2023BTE00126

PATIENT
  Age: 59 Year
  Sex: Male
  Weight: 98.413 kg

DRUGS (3)
  1. SUTAB [Suspect]
     Active Substance: MAGNESIUM SULFATE\POTASSIUM CHLORIDE\SODIUM SULFATE
     Indication: Colonoscopy
     Dosage: 1 X 12 TABLETS, 1X
     Route: 048
     Dates: start: 20230219, end: 20230219
  2. ^B SUPPLEMENT^ [Concomitant]
     Dosage: UNK
     Dates: end: 20230218
  3. ^B SUPPLEMENT^ [Concomitant]
     Dosage: UNK
     Dates: start: 20230220

REACTIONS (2)
  - Erythema [Recovered/Resolved]
  - Pruritus [Recovered/Resolved]

NARRATIVE: CASE EVENT DATE: 20230219
